FAERS Safety Report 8553316-1 (Version None)
Quarter: 2012Q3

REPORT INFORMATION
  Report Type: 
  Country: None (occurrence: None)
  Receive Date: 20120731
  Receipt Date: 20120716
  Transmission Date: 20120928
  Serious: Yes (Other)
  Sender: FDA-Public Use
  Company Number: US-ROCHE-1059972

PATIENT
  Sex: Female
  Weight: 83.99 kg

DRUGS (10)
  1. HERCEPTIN [Suspect]
     Route: 042
     Dates: start: 20120412
  2. HERCEPTIN [Suspect]
     Indication: BREAST CANCER
     Route: 042
     Dates: start: 20120315, end: 20120322
  3. HERCEPTIN [Suspect]
     Route: 048
     Dates: start: 20120101
  4. PREDNISONE [Concomitant]
     Route: 042
     Dates: start: 20120315
  5. HERCEPTIN [Suspect]
     Route: 042
     Dates: start: 20120412
  6. CYTOXAN [Concomitant]
     Indication: BREAST CANCER
     Route: 042
  7. DOCETAXEL [Concomitant]
     Indication: BREAST CANCER
     Route: 042
  8. CARBOPLATIN [Concomitant]
     Indication: BREAST CANCER
     Route: 042
     Dates: start: 20120315
  9. MINOCYCLINE HCL [Concomitant]
     Indication: HIDRADENITIS
     Route: 048
  10. TAXOTERE [Concomitant]
     Indication: BREAST CANCER
     Route: 042
     Dates: start: 20120315

REACTIONS (6)
  - TONGUE DISORDER [None]
  - HEADACHE [None]
  - LACRIMATION INCREASED [None]
  - MUSCLE TWITCHING [None]
  - NAUSEA [None]
  - DIZZINESS [None]
